FAERS Safety Report 10996154 (Version 2)
Quarter: 2015Q3

REPORT INFORMATION
  Report Type: Spontaneous
  Country: NL (occurrence: NL)
  Receive Date: 20150407
  Receipt Date: 20150715
  Transmission Date: 20151125
  Serious: Yes (Death)
  Sender: FDA-Public Use
  Company Number: NL-MYLANLABS-2015M1011111

PATIENT

DRUGS (3)
  1. PEMETREXED [Concomitant]
     Active Substance: PEMETREXED
     Indication: LUNG ADENOCARCINOMA STAGE III
     Dosage: THREE COURSES
     Route: 065
  2. TACROLIMUS. [Suspect]
     Active Substance: TACROLIMUS
     Indication: IMMUNOSUPPRESSANT DRUG THERAPY
     Route: 065
  3. CARBOPLATIN. [Concomitant]
     Active Substance: CARBOPLATIN
     Indication: LUNG ADENOCARCINOMA STAGE III
     Dosage: THREE COURSES
     Route: 065

REACTIONS (2)
  - Interstitial lung disease [Fatal]
  - Respiratory failure [Fatal]
